FAERS Safety Report 10672611 (Version 1)
Quarter: 2014Q4

REPORT INFORMATION
  Report Type: Spontaneous
  Country: US (occurrence: US)
  Receive Date: 20141223
  Receipt Date: 20141223
  Transmission Date: 20150529
  Serious: Yes (Hospitalization, Other)
  Sender: FDA-Public Use
  Company Number: US-GLAXOSMITHKLINE-US2014039495

PATIENT
  Age: 78 Year
  Sex: Male

DRUGS (3)
  1. VITAMINS [Concomitant]
     Active Substance: VITAMINS
  2. COMBIVENT RESPIMAT [Concomitant]
     Active Substance: ALBUTEROL SULFATE\IPRATROPIUM BROMIDE
     Indication: CHRONIC OBSTRUCTIVE PULMONARY DISEASE
     Dosage: UNK
  3. ADVAIR DISKUS [Suspect]
     Active Substance: FLUTICASONE PROPIONATE\SALMETEROL XINAFOATE
     Dosage: 1 PUFF(S), BID
     Route: 055
     Dates: start: 2002

REACTIONS (2)
  - Peripheral arterial occlusive disease [Recovering/Resolving]
  - Vascular graft [Recovering/Resolving]

NARRATIVE: CASE EVENT DATE: 20141218
